FAERS Safety Report 4778810-0 (Version None)
Quarter: 2005Q3

REPORT INFORMATION
  Report Type: 
  Country: None (occurrence: None)
  Receive Date: 20050922
  Receipt Date: 20050909
  Transmission Date: 20060218
  Serious: Yes (Death, Life-Threatening, Disabling)
  Sender: FDA-Public Use
  Company Number: 2005-01069

PATIENT
  Age: 78 Year
  Sex: Male
  Weight: 62 kg

DRUGS (8)
  1. VELCADE [Suspect]
     Indication: MULTIPLE MYELOMA
     Dosage: 2.30 MG, INTRAVENOUS
     Route: 042
     Dates: start: 20050502
  2. SOTALOL HCL [Concomitant]
  3. CARDIO ASPIRINA (ACETYLSALICYLIC ACID) [Concomitant]
  4. BACTRIM FORTE (SULFAMETHOXAZOLE, TRIMETHOPRIM) CAPSULE [Concomitant]
  5. CLOZAN (CLOTIAZEPAM) [Concomitant]
  6. LIPANTHYL (FENOFIBRATE) [Concomitant]
  7. ARANESP [Concomitant]
  8. ZOMETA [Concomitant]

REACTIONS (17)
  - ACUTE PULMONARY OEDEMA [None]
  - AKINESIA [None]
  - AORTIC VALVE INCOMPETENCE [None]
  - ATRIAL FIBRILLATION [None]
  - ATRIAL FLUTTER [None]
  - BLOOD PRESSURE DECREASED [None]
  - CARDIAC ARREST [None]
  - CARDIOGENIC SHOCK [None]
  - EJECTION FRACTION DECREASED [None]
  - MITRAL VALVE INCOMPETENCE [None]
  - MYOCARDIAL INFARCTION [None]
  - RENAL FAILURE ACUTE [None]
  - RESPIRATORY FAILURE [None]
  - SEPSIS [None]
  - SEPTIC SHOCK [None]
  - TACHYCARDIA [None]
  - VENTRICULAR EXTRASYSTOLES [None]
